FAERS Safety Report 9395256 (Version 3)
Quarter: 2014Q2

REPORT INFORMATION
  Report Type: Spontaneous
  Country: JP (occurrence: JP)
  Receive Date: 20130711
  Receipt Date: 20140408
  Transmission Date: 20141212
  Serious: Yes (Life-Threatening, Hospitalization)
  Sender: FDA-Public Use
  Company Number: JP-BAYER-2013-079532

PATIENT
  Age: 73 Year
  Sex: Male
  Weight: 58.05 kg

DRUGS (2)
  1. BAYASPIRIN [Suspect]
     Indication: CEREBRAL INFARCTION
     Dosage: 100 MG, UNK
     Route: 048
     Dates: end: 20130123
  2. BAYASPIRIN [Suspect]
     Indication: CEREBRAL INFARCTION
     Dosage: 100 MG, UNK
     Route: 048
     Dates: start: 20130131

REACTIONS (2)
  - Haemobilia [Recovered/Resolved]
  - Cholangitis [None]
